FAERS Safety Report 9905581 (Version 1)
Quarter: 2013Q2

REPORT INFORMATION
  Report Type: Spontaneous
  Country: US (occurrence: None)
  Receive Date: 20130305
  Receipt Date: 20130305
  Transmission Date: 20140414
  Serious: Yes (Hospitalization)
  Sender: FDA-Public Use
  Company Number: 163-21880-12041679

PATIENT
  Age: 63 Year
  Sex: Male

DRUGS (1)
  1. REVLIMID (LENALIDOMIDE) (25 MILLIGRAM, CAPSULES) [Suspect]
     Indication: PLASMA CELL MYELOMA
     Dosage: 25 MG, 1 IN 1 D, PO
     Route: 048
     Dates: start: 201005

REACTIONS (7)
  - Infection [None]
  - Pyrexia [None]
  - Anaemia [None]
  - Headache [None]
  - Nasopharyngitis [None]
  - Nasal congestion [None]
  - Rhinorrhoea [None]
